FAERS Safety Report 7336025-6 (Version None)
Quarter: 2011Q1

REPORT INFORMATION
  Report Type: 
  Country: None (occurrence: None)
  Receive Date: 20110307
  Receipt Date: 20110224
  Transmission Date: 20110831
  Serious: Yes (Other)
  Sender: FDA-Public Use
  Company Number: US-ELI_LILLY_AND_COMPANY-US201102007269

PATIENT
  Sex: Female

DRUGS (1)
  1. FORTEO [Suspect]
     Indication: OSTEOPOROSIS
     Dosage: 20 UG, DAILY (1/D)
     Dates: start: 20110221

REACTIONS (7)
  - DYSSTASIA [None]
  - NAUSEA [None]
  - BLOOD PRESSURE INCREASED [None]
  - DIZZINESS [None]
  - ASTHENIA [None]
  - INJECTION SITE NODULE [None]
  - INJECTION SITE PAIN [None]
